FAERS Safety Report 25175514 (Version 1)
Quarter: 2025Q2

REPORT INFORMATION
  Report Type: Spontaneous
  Country: FR (occurrence: FR)
  Receive Date: 20250408
  Receipt Date: 20250408
  Transmission Date: 20250717
  Serious: Yes (Hospitalization)
  Sender: MERCK SHARP AND DOHME
  Company Number: None

PATIENT
  Age: 46 Year
  Sex: Female
  Weight: 53.6 kg

DRUGS (14)
  1. KEYTRUDA [Suspect]
     Active Substance: PEMBROLIZUMAB
     Indication: T-cell lymphoma
     Route: 042
     Dates: start: 20241128
  2. KEYTRUDA [Suspect]
     Active Substance: PEMBROLIZUMAB
     Indication: T-cell lymphoma
     Route: 042
     Dates: start: 20241218, end: 20241220
  3. KEYTRUDA [Suspect]
     Active Substance: PEMBROLIZUMAB
     Indication: T-cell lymphoma
     Route: 042
     Dates: start: 20250106, end: 20250108
  4. ENOXAPARIN SODIUM [Concomitant]
     Active Substance: ENOXAPARIN SODIUM
  5. BROMAZEPAM [Concomitant]
     Active Substance: BROMAZEPAM
  6. LANSOPRAZOLE [Concomitant]
     Active Substance: LANSOPRAZOLE
  7. BACTRIM [Concomitant]
     Active Substance: SULFAMETHOXAZOLE\TRIMETHOPRIM
  8. TRAMADOL HYDROCHLORIDE [Concomitant]
     Active Substance: TRAMADOL HYDROCHLORIDE
  9. VIDAZA [Concomitant]
     Active Substance: AZACITIDINE
  10. PENICILLIN V [Concomitant]
     Active Substance: PENICILLIN V
  11. LEUCOVORIN CALCIUM [Concomitant]
     Active Substance: LEUCOVORIN CALCIUM
  12. 1,3,5-TRIMETHOXYBENZENE [Concomitant]
     Active Substance: 1,3,5-TRIMETHOXYBENZENE
  13. ACETAMINOPHEN [Concomitant]
     Active Substance: ACETAMINOPHEN
  14. VALACYCLOVIR HYDROCHLORIDE [Concomitant]
     Active Substance: VALACYCLOVIR HYDROCHLORIDE

REACTIONS (2)
  - Pyrexia [Recovering/Resolving]
  - Febrile neutropenia [Recovered/Resolved with Sequelae]

NARRATIVE: CASE EVENT DATE: 20250126
